FAERS Safety Report 5764927-0 (Version None)
Quarter: 2008Q2

REPORT INFORMATION
  Report Type: 
  Country: None (occurrence: None)
  Receive Date: 20080611
  Receipt Date: 20080603
  Transmission Date: 20081010
  Serious: Yes (Hospitalization)
  Sender: FDA-Public Use
  Company Number: A0730903A

PATIENT
  Age: 83 Year
  Sex: Male

DRUGS (4)
  1. VALTREX [Suspect]
     Route: 048
     Dates: start: 20070901, end: 20070901
  2. PREDNISONE TAB [Concomitant]
  3. ASPIRIN [Concomitant]
  4. BENICAR [Concomitant]

REACTIONS (4)
  - BLOOD URINE PRESENT [None]
  - DELIRIUM [None]
  - PYREXIA [None]
  - URINARY TRACT INFECTION [None]
